FAERS Safety Report 16079916 (Version 1)
Quarter: 2019Q1

REPORT INFORMATION
  Report Type: Spontaneous
  Country: FR (occurrence: FR)
  Receive Date: 20190315
  Receipt Date: 20190315
  Transmission Date: 20190418
  Serious: Yes (Hospitalization, Other)
  Sender: FDA-Public Use
  Company Number: FR-SEATTLE GENETICS-2019SGN00725

PATIENT
  Age: 63 Year
  Sex: Male
  Weight: 115 kg

DRUGS (2)
  1. ADCETRIS [Suspect]
     Active Substance: BRENTUXIMAB VEDOTIN
     Indication: MYCOSIS FUNGOIDES
     Dosage: 150 MILLIGRAM
     Route: 042
     Dates: start: 20190102, end: 20190102
  2. BENDAMUSTINE (CHLORHYDRATE DE) [Suspect]
     Active Substance: BENDAMUSTINE HYDROCHLORIDE
     Indication: MYCOSIS FUNGOIDES
     Dosage: 250 MILLIGRAM
     Route: 042
     Dates: start: 20190102, end: 20190102

REACTIONS (2)
  - Acute kidney injury [Recovering/Resolving]
  - Anaphylactic shock [Recovered/Resolved]

NARRATIVE: CASE EVENT DATE: 20190102
